FAERS Safety Report 5156416-1 (Version None)
Quarter: 2006Q4

REPORT INFORMATION
  Report Type: 
  Country: None (occurrence: None)
  Receive Date: 20061122
  Receipt Date: 20060405
  Transmission Date: 20070319
  Serious: Yes (Other)
  Sender: FDA-Public Use
  Company Number: US-ROCHE-443574

PATIENT
  Age: 20 Year
  Sex: Female
  Weight: 72.6 kg

DRUGS (1)
  1. ACCUTANE [Suspect]
     Indication: ACNE
     Route: 048
     Dates: start: 19950515, end: 19950717

REACTIONS (6)
  - COLITIS [None]
  - COLITIS ULCERATIVE [None]
  - CROHN'S DISEASE [None]
  - HAEMORRHOIDS [None]
  - INFLAMMATORY BOWEL DISEASE [None]
  - PROCTITIS ULCERATIVE [None]
